FAERS Safety Report 13980234 (Version 4)
Quarter: 2019Q3

REPORT INFORMATION
  Report Type: Spontaneous
  Country: NO (occurrence: NO)
  Receive Date: 20170917
  Receipt Date: 20190806
  Transmission Date: 20191004
  Serious: Yes (Hospitalization, Other)
  Sender: FDA-Public Use
  Company Number: NO-MYLANLABS-2017M1056816

PATIENT
  Sex: Female

DRUGS (4)
  1. QUETIAPINE. [Suspect]
     Active Substance: QUETIAPINE
     Indication: BIPOLAR DISORDER
     Dosage: UNK
     Route: 064
  2. CLOMIPRAMINE [Suspect]
     Active Substance: CLOMIPRAMINE
     Indication: BIPOLAR DISORDER
     Dosage: UNK
     Route: 064
  3. LITHIUM. [Suspect]
     Active Substance: LITHIUM
     Indication: BIPOLAR DISORDER
     Dosage: UNK
     Route: 064
  4. FENTANYL. [Suspect]
     Active Substance: FENTANYL
     Indication: PRODUCT USED FOR UNKNOWN INDICATION
     Dosage: 3 MICROGRAM/KILOGRAM
     Route: 064

REACTIONS (14)
  - Diarrhoea haemorrhagic [Recovered/Resolved]
  - Hyperammonaemia [Recovered/Resolved]
  - Intestinal gangrene [Recovered/Resolved]
  - Foetal exposure during pregnancy [Recovered/Resolved]
  - Coma neonatal [Recovered/Resolved]
  - Respiratory failure [Recovered/Resolved]
  - Infantile apnoea [Recovered/Resolved]
  - Neonatal respiratory distress syndrome [Recovered/Resolved]
  - Drug withdrawal syndrome neonatal [Recovered/Resolved]
  - Abdominal distension [Recovered/Resolved]
  - Drug abuse [Unknown]
  - Ammonia increased [Recovered/Resolved]
  - Hypertonia [Recovered/Resolved]
  - Irritability [Recovered/Resolved]
